FAERS Safety Report 7581935-8 (Version None)
Quarter: 2011Q2

REPORT INFORMATION
  Report Type: 
  Country: None (occurrence: None)
  Receive Date: 20110629
  Receipt Date: 20110627
  Transmission Date: 20111010
  Serious: Yes (Death)
  Sender: FDA-Public Use
  Company Number: SK-CELGENEUS-260-21880-11063559

PATIENT
  Sex: Male

DRUGS (3)
  1. ENOXAPARIN SODIUM [Concomitant]
     Indication: MULTIPLE MYELOMA
     Route: 065
     Dates: start: 20110223, end: 20110602
  2. REVLIMID [Suspect]
     Indication: MULTIPLE MYELOMA
     Route: 048
     Dates: start: 20110223, end: 20110602
  3. DEXAMETHASONE [Concomitant]
     Indication: MULTIPLE MYELOMA
     Route: 065
     Dates: start: 20110223, end: 20110602

REACTIONS (2)
  - CARDIOPULMONARY FAILURE [None]
  - PANCYTOPENIA [None]
